FAERS Safety Report 4666074-8 (Version None)
Quarter: 2005Q2

REPORT INFORMATION
  Report Type: 
  Country: None (occurrence: None)
  Receive Date: 20050519
  Receipt Date: 20050509
  Transmission Date: 20051028
  Serious: Yes (Other)
  Sender: FDA-Public Use
  Company Number: US-GLAXOSMITHKLINE-A0557776A

PATIENT
  Age: 34 Year
  Sex: Female

DRUGS (1)
  1. PAXIL CR [Suspect]
     Indication: GENERALISED ANXIETY DISORDER
     Dosage: 25MG TWICE PER DAY
     Route: 048
     Dates: start: 20040601, end: 20041101

REACTIONS (6)
  - ABORTION SPONTANEOUS [None]
  - DRUG WITHDRAWAL SYNDROME [None]
  - HYPERHIDROSIS [None]
  - NIGHTMARE [None]
  - PARAESTHESIA [None]
  - PREGNANCY [None]
